FAERS Safety Report 14513770 (Version 1)
Quarter: 2018Q1

REPORT INFORMATION
  Report Type: Spontaneous
  Country: US (occurrence: US)
  Receive Date: 20180208
  Receipt Date: 20180208
  Transmission Date: 20180509
  Serious: Yes (Life-Threatening)
  Sender: FDA-Public Use
  Company Number: None

PATIENT
  Age: 64 Year
  Sex: Female
  Weight: 90 kg

DRUGS (3)
  1. LEVOXYL [Concomitant]
     Active Substance: LEVOTHYROXINE SODIUM
  2. AFINITOR [Concomitant]
     Active Substance: EVEROLIMUS
  3. VALSARTAN 80 MG TABLET [Suspect]
     Active Substance: VALSARTAN
     Indication: HYPERTENSION
     Dosage: ?          QUANTITY:1 TABLET(S);?
     Route: 048
     Dates: start: 20170921, end: 20171030

REACTIONS (3)
  - Product substitution issue [None]
  - Drug ineffective [None]
  - Blood pressure increased [None]

NARRATIVE: CASE EVENT DATE: 20171021
